FAERS Safety Report 26218359 (Version 1)
Quarter: 2025Q4

REPORT INFORMATION
  Report Type: Spontaneous
  Country: EU (occurrence: EU)
  Receive Date: 20251231
  Receipt Date: 20251231
  Transmission Date: 20260118
  Serious: Yes (Life-Threatening)
  Sender: PFIZER
  Company Number: EU-GLAXOSMITHKLINE-FR2020GSK238061

PATIENT
  Age: 60 Year
  Sex: Female
  Weight: 81 kg

DRUGS (18)
  1. CARBOPLATIN [Suspect]
     Active Substance: CARBOPLATIN
     Indication: Ovarian cancer
     Dosage: INTRAVENOUS INFUSION
     Route: 042
     Dates: start: 20190520
  2. CARBOPLATIN [Suspect]
     Active Substance: CARBOPLATIN
     Dosage: INTRAVENOUS INFUSION
     Route: 042
     Dates: start: 20190612
  3. CARBOPLATIN [Suspect]
     Active Substance: CARBOPLATIN
     Dosage: INTRAVENOUS INFUSION
     Route: 042
     Dates: start: 20190702
  4. CARBOPLATIN [Suspect]
     Active Substance: CARBOPLATIN
     Dosage: INTRAVENOUS INFUSION
     Route: 042
     Dates: start: 20190730
  5. CARBOPLATIN [Suspect]
     Active Substance: CARBOPLATIN
     Dosage: INTRAVENOUS INFUSION
     Route: 042
     Dates: start: 20190828
  6. CARBOPLATIN [Suspect]
     Active Substance: CARBOPLATIN
     Dosage: INTRAVENOUS INFUSION
     Route: 042
     Dates: start: 20190918
  7. PACLITAXEL [Suspect]
     Active Substance: PACLITAXEL
     Indication: Ovarian cancer
     Dosage: INTRAVENOUS INFUSION
     Route: 042
     Dates: start: 20190520
  8. PACLITAXEL [Suspect]
     Active Substance: PACLITAXEL
     Dosage: INTRAVENOUS INFUSION
     Route: 042
     Dates: start: 20190612
  9. PACLITAXEL [Suspect]
     Active Substance: PACLITAXEL
     Dosage: INTRAVENOUS INFUSION
     Route: 042
     Dates: start: 20190702
  10. PACLITAXEL [Suspect]
     Active Substance: PACLITAXEL
     Dosage: INTRAVENOUS INFUSION
     Route: 042
     Dates: start: 20190730
  11. BEVACIZUMAB [Suspect]
     Active Substance: BEVACIZUMAB
     Indication: Ovarian cancer
     Dosage: INTRAVENOUS INFUSION
     Route: 042
     Dates: start: 20190520
  12. BEVACIZUMAB [Suspect]
     Active Substance: BEVACIZUMAB
     Dosage: INTRAVENOUS INFUSION
     Route: 042
     Dates: start: 20190702
  13. BEVACIZUMAB [Suspect]
     Active Substance: BEVACIZUMAB
     Dosage: INTRAVENOUS INFUSION
     Route: 042
     Dates: start: 20200108
  14. BEVACIZUMAB [Suspect]
     Active Substance: BEVACIZUMAB
     Dosage: INTRAVENOUS INFUSION
     Route: 042
     Dates: start: 20200324
  15. NIRAPARIB [Suspect]
     Active Substance: NIRAPARIB
     Indication: Ovarian cancer
     Dosage: UNK
     Dates: start: 20191010
  16. DOSTARLIMAB [Suspect]
     Active Substance: DOSTARLIMAB
     Indication: Ovarian cancer
     Dosage: UNK
     Dates: start: 20190612
  17. DOSTARLIMAB [Suspect]
     Active Substance: DOSTARLIMAB
     Dosage: UNK
     Dates: start: 20191010
  18. DOXORUBICIN HYDROCHLORIDE [Concomitant]
     Active Substance: DOXORUBICIN HYDROCHLORIDE
     Indication: Ovarian cancer
     Dosage: EVERY 4 WEEKS
     Route: 042
     Dates: start: 20200623

REACTIONS (2)
  - Second primary malignancy [Not Recovered/Not Resolved]
  - Myelodysplastic syndrome [Not Recovered/Not Resolved]

NARRATIVE: CASE EVENT DATE: 20201110
